FAERS Safety Report 5312499-7 (Version None)
Quarter: 2007Q2

REPORT INFORMATION
  Report Type: 
  Country: None (occurrence: None)
  Receive Date: 20070430
  Receipt Date: 20061019
  Transmission Date: 20071010
  Serious: No
  Sender: FDA-Public Use
  Company Number: 2006UW20251

PATIENT
  Age: 60 Year
  Sex: Female
  Weight: 56.7 kg

DRUGS (8)
  1. NEXIUM [Suspect]
     Indication: EROSIVE OESOPHAGITIS
     Route: 048
     Dates: start: 20060901
  2. ESTRADIOL [Concomitant]
  3. PREVERAL [Concomitant]
  4. TRAZODONE HCL [Concomitant]
  5. ACTINOL [Concomitant]
  6. CALCIUM CHLORIDE [Concomitant]
  7. ASCORBIC ACID [Concomitant]
  8. VITAMIN E [Concomitant]

REACTIONS (3)
  - ABDOMINAL DISTENSION [None]
  - DYSPEPSIA [None]
  - THROAT IRRITATION [None]
